FAERS Safety Report 4756008-X (Version None)
Quarter: 2005Q3

REPORT INFORMATION
  Report Type: 
  Country: None (occurrence: None)
  Receive Date: 20050830
  Receipt Date: 20050801
  Transmission Date: 20060218
  Serious: Yes (Hospitalization)
  Sender: FDA-Public Use
  Company Number: FI-NOVOPROD-245990

PATIENT
  Age: 75 Year
  Sex: Male
  Weight: 100 kg

DRUGS (5)
  1. NOVOSEVEN [Suspect]
     Indication: HAEMORRHAGE
     Dosage: 24 UG/KG, SINGLE
     Dates: start: 20040121
  2. APROTININ [Concomitant]
     Indication: ANTICOAGULANT THERAPY
  3. RED BLOOD CELLS [Concomitant]
     Indication: HAEMORRHAGE
  4. FRESH FROZEN PLASMA [Concomitant]
     Indication: HAEMORRHAGE
  5. PLATELETS [Concomitant]
     Indication: HAEMORRHAGE

REACTIONS (7)
  - ARTERIAL THROMBOSIS [None]
  - HAEMODIALYSIS [None]
  - PERIPHERAL ISCHAEMIA [None]
  - POLYNEUROPATHY [None]
  - POST PROCEDURAL COMPLICATION [None]
  - RENAL FAILURE [None]
  - RESPIRATORY FAILURE [None]
